FAERS Safety Report 7135413-0 (Version None)
Quarter: 2010Q4

REPORT INFORMATION
  Report Type: 
  Country: None (occurrence: None)
  Receive Date: 20101203
  Receipt Date: 20101201
  Transmission Date: 20110411
  Serious: Yes (Other)
  Sender: FDA-Public Use
  Company Number: FI-PFIZER INC-2010162314

PATIENT
  Age: 42 Year
  Sex: Male

DRUGS (3)
  1. CHAMPIX [Suspect]
     Indication: SMOKING CESSATION THERAPY
     Dosage: 0.5 MG, 1X/DAY (DAYS 1-3)
     Dates: start: 20100101, end: 20100101
  2. CHAMPIX [Suspect]
     Dosage: 0.5 MG, 2X/DAY (DAYS 4-7)
     Dates: start: 20100101, end: 20100101
  3. CHAMPIX [Suspect]
     Dosage: 1 MG, 2X/DAY (SINCE DAY 8 UNTIL THE END OF TREATMENT)
     Dates: start: 20100101, end: 20101101

REACTIONS (1)
  - HAEMATOCHEZIA [None]
